FAERS Safety Report 13274428 (Version 1)
Quarter: 2017Q1

REPORT INFORMATION
  Report Type: Report from Study
  Country: FR (occurrence: FR)
  Receive Date: 20170227
  Receipt Date: 20170227
  Transmission Date: 20170428
  Serious: Yes (Hospitalization, Other)
  Sender: FDA-Public Use
  Company Number: FR-MYLANLABS-2017M1011219

PATIENT

DRUGS (2)
  1. FLUINDIONE [Suspect]
     Active Substance: FLUINDIONE
     Indication: PRODUCT USED FOR UNKNOWN INDICATION
     Route: 065
  2. DIGOXIN. [Suspect]
     Active Substance: DIGOXIN
     Indication: PRODUCT USED FOR UNKNOWN INDICATION
     Route: 065

REACTIONS (5)
  - International normalised ratio increased [Unknown]
  - Cardioactive drug level increased [Unknown]
  - Asthenia [Unknown]
  - Toxicity to various agents [Unknown]
  - Gastric haemorrhage [Unknown]
